FAERS Safety Report 26022269 (Version 2)
Quarter: 2025Q4

REPORT INFORMATION
  Report Type: Spontaneous
  Country: US (occurrence: US)
  Receive Date: 20251110
  Receipt Date: 20251205
  Transmission Date: 20260117
  Serious: No
  Sender: GILEAD
  Company Number: US-GILEAD-2025-0735161

PATIENT
  Age: 45 Year
  Sex: Male

DRUGS (1)
  1. EPCLUSA [Suspect]
     Active Substance: SOFOSBUVIR\VELPATASVIR
     Indication: Product used for unknown indication
     Dosage: UNK
     Route: 065
     Dates: start: 20251021

REACTIONS (7)
  - Hyperhidrosis [Not Recovered/Not Resolved]
  - Dysphonia [Not Recovered/Not Resolved]
  - Productive cough [Not Recovered/Not Resolved]
  - Balanoposthitis [Recovering/Resolving]
  - Penile swelling [Recovering/Resolving]
  - Penile erythema [Recovering/Resolving]
  - Penile discharge [Not Recovered/Not Resolved]

NARRATIVE: CASE EVENT DATE: 20251021
